FAERS Safety Report 14012115 (Version 1)
Quarter: 2017Q3

REPORT INFORMATION
  Report Type: Spontaneous
  Country: US (occurrence: US)
  Receive Date: 20170926
  Receipt Date: 20170926
  Transmission Date: 20171128
  Serious: Yes (Hospitalization, Other)
  Sender: FDA-Public Use
  Company Number: None

PATIENT
  Sex: Female
  Weight: 54.45 kg

DRUGS (5)
  1. AREDS [Concomitant]
     Active Substance: MINERALS\VITAMINS
  2. CIPRO [Suspect]
     Active Substance: CIPROFLOXACIN HYDROCHLORIDE
     Indication: URINARY TRACT INFECTION
     Dosage: ?          QUANTITY:20 TABLET(S);?
     Route: 048
     Dates: start: 20170805, end: 20170825
  3. VITAMIN D [Concomitant]
     Active Substance: CHOLECALCIFEROL
  4. NAPROXIM [Concomitant]
  5. VITAMIN C [Concomitant]
     Active Substance: ASCORBIC ACID

REACTIONS (11)
  - Confusional state [None]
  - Mental status changes [None]
  - Headache [None]
  - Abnormal dreams [None]
  - Feeling abnormal [None]
  - Toxicity to various agents [None]
  - Fall [None]
  - Asthenia [None]
  - Decreased appetite [None]
  - Dizziness [None]
  - Feeling cold [None]

NARRATIVE: CASE EVENT DATE: 20170814
